FAERS Safety Report 24943810 (Version 2)
Quarter: 2025Q1

REPORT INFORMATION
  Report Type: Spontaneous
  Country: US (occurrence: US)
  Receive Date: 20250207
  Receipt Date: 20250214
  Transmission Date: 20250408
  Serious: Yes (Hospitalization, Other)
  Sender: BIOMARIN
  Company Number: US-BIOMARINAP-US-2025-163585

PATIENT

DRUGS (1)
  1. PALYNZIQ [Suspect]
     Active Substance: PEGVALIASE-PQPZ
     Indication: Phenylketonuria
     Dosage: 20 MILLIGRAM, QD
     Route: 058

REACTIONS (4)
  - Anaphylactic reaction [Recovering/Resolving]
  - Loss of consciousness [Recovering/Resolving]
  - Pallor [Recovering/Resolving]
  - Off label use [Unknown]
